FAERS Safety Report 6906185-7 (Version None)
Quarter: 2010Q3

REPORT INFORMATION
  Report Type: 
  Country: None (occurrence: None)
  Receive Date: 20100804
  Receipt Date: 20100726
  Transmission Date: 20110219
  Serious: Yes (Hospitalization, Other)
  Sender: FDA-Public Use
  Company Number: US-MERCK-0805USA00894

PATIENT
  Age: 51 Year
  Sex: Female
  Weight: 47 kg

DRUGS (6)
  1. FOSAMAX [Suspect]
     Indication: OSTEOPENIA
     Route: 048
     Dates: start: 19960101, end: 20060101
  2. FOSAMAX [Suspect]
     Route: 048
     Dates: start: 20021127
  3. FOSAMAX [Suspect]
     Route: 048
     Dates: start: 20001107
  4. FOSAMAX [Suspect]
     Indication: OSTEOPOROSIS
     Route: 048
     Dates: start: 19960101, end: 20060101
  5. FOSAMAX [Suspect]
     Route: 048
     Dates: start: 20021127
  6. FOSAMAX [Suspect]
     Route: 048
     Dates: start: 20001107

REACTIONS (88)
  - ABDOMINAL COMPARTMENT SYNDROME [None]
  - ABDOMINAL PAIN [None]
  - ACUTE MYOCARDIAL INFARCTION [None]
  - ADENOCARCINOMA [None]
  - ADVERSE DRUG REACTION [None]
  - ANAEMIA [None]
  - ARTERIAL INJURY [None]
  - ARTERIOVENOUS MALFORMATION [None]
  - ARTHRALGIA [None]
  - BACK DISORDER [None]
  - BACK PAIN [None]
  - BACTERAEMIA [None]
  - BLUE TOE SYNDROME [None]
  - BONE DENSITY DECREASED [None]
  - BRADYCARDIA [None]
  - CEREBROVASCULAR ACCIDENT [None]
  - CHRONIC OBSTRUCTIVE PULMONARY DISEASE [None]
  - CONDUCTIVE DEAFNESS [None]
  - CONSTIPATION [None]
  - CORONARY ARTERY DISEASE [None]
  - DECUBITUS ULCER [None]
  - DEEP VEIN THROMBOSIS [None]
  - DELIRIUM [None]
  - DENTAL CARIES [None]
  - DEPRESSION [None]
  - DEVICE BREAKAGE [None]
  - DRUG DEPENDENCE [None]
  - DRY MOUTH [None]
  - DYSPHAGIA [None]
  - ENCEPHALOPATHY [None]
  - ESCHERICHIA INFECTION [None]
  - FALL [None]
  - FOOT FRACTURE [None]
  - GASTRITIS [None]
  - GASTROOESOPHAGEAL REFLUX DISEASE [None]
  - GINGIVITIS [None]
  - HAEMORRHAGE [None]
  - HAEMORRHAGIC ANAEMIA [None]
  - HAEMORRHOIDS [None]
  - ILEUS [None]
  - INFECTION [None]
  - INTERVERTEBRAL DISC DEGENERATION [None]
  - INTERVERTEBRAL DISC PROTRUSION [None]
  - JOINT CONTRACTURE [None]
  - JOINT RANGE OF MOTION DECREASED [None]
  - KYPHOSCOLIOSIS [None]
  - LUMBAR RADICULOPATHY [None]
  - LUMBAR SPINAL STENOSIS [None]
  - LUMBAR VERTEBRAL FRACTURE [None]
  - LUNG DISORDER [None]
  - MENTAL STATUS CHANGES [None]
  - METASTASIS [None]
  - NEUROGENIC BOWEL [None]
  - NEUROPATHY PERIPHERAL [None]
  - NOSOCOMIAL INFECTION [None]
  - OEDEMA PERIPHERAL [None]
  - OSTEONECROSIS OF JAW [None]
  - OVERDOSE [None]
  - PAIN [None]
  - PAIN IN EXTREMITY [None]
  - PERIODONTAL DISEASE [None]
  - PERIPHERAL PARALYSIS [None]
  - PERONEAL NERVE PALSY [None]
  - PNEUMONIA STAPHYLOCOCCAL [None]
  - POST LAMINECTOMY SYNDROME [None]
  - POSTOPERATIVE WOUND COMPLICATION [None]
  - PSEUDOCYST [None]
  - PYREXIA [None]
  - RESPIRATORY DEPRESSION [None]
  - RESPIRATORY FAILURE [None]
  - ROTATOR CUFF SYNDROME [None]
  - SCIATICA [None]
  - SEPSIS SYNDROME [None]
  - SEROMA [None]
  - SINUSITIS [None]
  - SPINAL DEFORMITY [None]
  - SPINAL DISORDER [None]
  - SPINAL OSTEOARTHRITIS [None]
  - SQUAMOUS CELL CARCINOMA [None]
  - STAPHYLOCOCCAL INFECTION [None]
  - TINNITUS [None]
  - TOOTH INFECTION [None]
  - UPPER GASTROINTESTINAL HAEMORRHAGE [None]
  - URINARY TRACT DISORDER [None]
  - URINARY TRACT INFECTION BACTERIAL [None]
  - VENOUS HAEMORRHAGE [None]
  - WOUND DEHISCENCE [None]
  - WOUND INFECTION [None]
